FAERS Safety Report 8099648-5 (Version None)
Quarter: 2012Q1

REPORT INFORMATION
  Report Type: 
  Country: None (occurrence: None)
  Receive Date: 20120129
  Receipt Date: 20111010
  Transmission Date: 20120608
  Serious: No
  Sender: FDA-Public Use
  Company Number: US-ABBOTT-11P-163-0862164-00

PATIENT

DRUGS (3)
  1. HUMIRA [Suspect]
     Indication: CROHN'S DISEASE
     Dates: start: 20110101
  2. VITAMIN B-12 [Concomitant]
     Indication: PRODUCT USED FOR UNKNOWN INDICATION
  3. IRON [Concomitant]
     Indication: PRODUCT USED FOR UNKNOWN INDICATION

REACTIONS (11)
  - ABDOMINAL PAIN [None]
  - FATIGUE [None]
  - DIARRHOEA [None]
  - DRY SKIN [None]
  - RASH PUSTULAR [None]
  - RASH PAPULAR [None]
  - SKIN FISSURES [None]
  - BACK PAIN [None]
  - WOUND HAEMORRHAGE [None]
  - WEIGHT INCREASED [None]
  - SKIN DISCOLOURATION [None]
